FAERS Safety Report 4425380-2 (Version None)
Quarter: 2004Q3

REPORT INFORMATION
  Report Type: 
  Country: None (occurrence: None)
  Receive Date: 20040813
  Receipt Date: 20040810
  Transmission Date: 20050211
  Serious: Yes (Hospitalization)
  Sender: FDA-Public Use
  Company Number: US-GLAXOSMITHKLINE-A0521626A

PATIENT
  Age: 48 Year
  Sex: Female

DRUGS (2)
  1. MELPHALAN [Suspect]
     Indication: MULTIPLE MYELOMA
     Route: 042
     Dates: start: 20031116
  2. THALIDOMIDE [Suspect]

REACTIONS (13)
  - ABDOMINAL PAIN UPPER [None]
  - BRADYCARDIA [None]
  - DIARRHOEA [None]
  - HYDRONEPHROSIS [None]
  - HYPOTENSION [None]
  - HYPOXIA [None]
  - ILL-DEFINED DISORDER [None]
  - MASS [None]
  - PNEUMONIA [None]
  - PULMONARY OEDEMA [None]
  - RESPIRATORY DISTRESS [None]
  - SEPSIS [None]
  - THROMBOSIS [None]
